FAERS Safety Report 7053636 (Version 18)
Quarter: 2013Q3

REPORT INFORMATION
  Report Type: Spontaneous
  Country: US (occurrence: US)
  Receive Date: 20090717
  Receipt Date: 20130717
  Transmission Date: 20140515
  Serious: Yes (Death, Other)
  Sender: FDA-Public Use
  Company Number: PHEH2009US07474

PATIENT
  Age: 44 Year
  Sex: Female

DRUGS (7)
  1. ZOMETA [Suspect]
     Route: 042
  2. TAXOL [Concomitant]
  3. HERCEPTIN [Concomitant]
  4. TAMOXIFEN [Concomitant]
  5. CARBOPLATIN [Concomitant]
  6. NAVELBINE [Concomitant]
  7. XANAX [Concomitant]

REACTIONS (46)
  - Death [Fatal]
  - Osteonecrosis of jaw [Unknown]
  - General physical health deterioration [Unknown]
  - Pain [Unknown]
  - Anxiety [Unknown]
  - Anhedonia [Unknown]
  - Disability [Unknown]
  - Haemoptysis [Unknown]
  - Hypertension [Unknown]
  - Malnutrition [Unknown]
  - Asthma [Unknown]
  - Depression [Unknown]
  - Neoplasm progression [Unknown]
  - Pneumothorax [Unknown]
  - Dyspnoea [Unknown]
  - Pleural effusion [Unknown]
  - Malignant neoplasm progression [Unknown]
  - Metastases to lung [Unknown]
  - Malignant pleural effusion [Unknown]
  - Lung infiltration [Recovering/Resolving]
  - Hepatic lesion [Unknown]
  - Restrictive pulmonary disease [Unknown]
  - Abdominal pain [Unknown]
  - Metastases to bone [Unknown]
  - Pleural calcification [Unknown]
  - Metastases to liver [Unknown]
  - Chest pain [Unknown]
  - Pneumothorax [Unknown]
  - Atelectasis [Unknown]
  - Pain in jaw [Unknown]
  - Erythema [Unknown]
  - Lung cyst [Unknown]
  - Abdominal mass [Unknown]
  - Pulmonary mass [Unknown]
  - Bronchiectasis [Unknown]
  - Osteosclerosis [Unknown]
  - Pelvic mass [Unknown]
  - Ascites [Unknown]
  - Acute respiratory failure [Unknown]
  - Hypoxia [Unknown]
  - Urinary retention [Unknown]
  - Aortic calcification [Unknown]
  - Vascular calcification [Unknown]
  - Phlebolith [Unknown]
  - Osteolysis [Unknown]
  - Abdominal distension [Unknown]
